FAERS Safety Report 6608389-X (Version None)
Quarter: 2010Q1

REPORT INFORMATION
  Report Type: 
  Country: None (occurrence: None)
  Receive Date: 20100301
  Receipt Date: 20100223
  Transmission Date: 20100710
  Serious: Yes (Hospitalization)
  Sender: FDA-Public Use
  Company Number: US-JNJFOC-20091206029

PATIENT
  Sex: Female
  Weight: 51.3 kg

DRUGS (3)
  1. INFLIXIMAB [Suspect]
     Indication: CROHN'S DISEASE
     Route: 042
  2. PREDNISONE [Concomitant]
     Indication: CROHN'S DISEASE
  3. ANTIBIOTICS [Concomitant]
     Indication: CROHN'S DISEASE

REACTIONS (1)
  - CLOSTRIDIAL INFECTION [None]
